FAERS Safety Report 18713861 (Version 2)
Quarter: 2021Q1

REPORT INFORMATION
  Report Type: Spontaneous
  Country: GB (occurrence: GB)
  Receive Date: 20210107
  Receipt Date: 20210311
  Transmission Date: 20210419
  Serious: Yes (Death, Hospitalization)
  Sender: FDA-Public Use
  Company Number: GB-ELI_LILLY_AND_COMPANY-GB202101002033

PATIENT
  Age: 23 Year
  Sex: Male

DRUGS (1)
  1. ATOMOXETINE HYDROCHLORIDE. [Suspect]
     Active Substance: ATOMOXETINE HYDROCHLORIDE
     Indication: ATTENTION DEFICIT HYPERACTIVITY DISORDER
     Dosage: 2200 MG, UNKNOWN
     Route: 048
     Dates: start: 20201210, end: 20201210

REACTIONS (4)
  - Pulseless electrical activity [Unknown]
  - Acidosis [Unknown]
  - Overdose [Unknown]
  - Generalised tonic-clonic seizure [Fatal]

NARRATIVE: CASE EVENT DATE: 20201210
